FAERS Safety Report 25167718 (Version 1)
Quarter: 2025Q2

REPORT INFORMATION
  Report Type: Other
  Country: FR (occurrence: None)
  Receive Date: 20250407
  Receipt Date: 20250407
  Transmission Date: 20250716
  Serious: Yes (Other)
  Sender: INCYTE
  Company Number: None

PATIENT
  Age: 71 Year

DRUGS (3)
  1. RUXOLITINIB [Suspect]
     Active Substance: RUXOLITINIB
     Indication: Polycythaemia vera
     Dosage: 10 MG - 0 - 10 MG
  2. RUXOLITINIB [Suspect]
     Active Substance: RUXOLITINIB
     Dosage: 15MG - 0 - 15 MG
  3. HYDREA [Suspect]
     Active Substance: HYDROXYUREA
     Indication: Polycythaemia vera
     Dosage: 1500 MG, QD

REACTIONS (1)
  - Basal cell carcinoma [Recovered/Resolved with Sequelae]
